FAERS Safety Report 4491491-9 (Version None)
Quarter: 2004Q4

REPORT INFORMATION
  Report Type: 
  Country: None (occurrence: None)
  Receive Date: 20041029
  Receipt Date: 20041028
  Transmission Date: 20050328
  Serious: Yes (Hospitalization)
  Sender: FDA-Public Use
  Company Number: S04-USA-05601-01

PATIENT
  Age: 50 Year
  Sex: Female

DRUGS (7)
  1. LEXAPRO [Suspect]
     Indication: DEPRESSION
     Dosage: 10 MG QD PO
     Route: 048
     Dates: start: 20040809, end: 20040815
  2. LEXAPRO [Suspect]
     Indication: PAIN
     Dosage: 10 MG QD PO
     Route: 048
     Dates: start: 20040809, end: 20040815
  3. HYDROCODONE [Concomitant]
  4. REMICADE [Concomitant]
  5. PEPCID AC [Concomitant]
  6. PAXIL [Concomitant]
  7. LANTUS [Concomitant]

REACTIONS (11)
  - AGGRESSION [None]
  - AMNESIA [None]
  - BLOOD GLUCOSE INCREASED [None]
  - CONFUSIONAL STATE [None]
  - DRUG SCREEN POSITIVE [None]
  - HEADACHE [None]
  - MENTAL STATUS CHANGES [None]
  - METABOLIC ACIDOSIS [None]
  - PSYCHOTIC DISORDER [None]
  - RESPIRATORY ALKALOSIS [None]
  - WHITE BLOOD CELL COUNT INCREASED [None]
